FAERS Safety Report 12546192 (Version 1)
Quarter: 2016Q3

REPORT INFORMATION
  Report Type: Report from Study
  Country: PA (occurrence: PA)
  Receive Date: 20160711
  Receipt Date: 20160711
  Transmission Date: 20161109
  Serious: Yes (Death, Hospitalization)
  Sender: FDA-Public Use
  Company Number: PA-ABBVIE-16P-125-1664195-00

PATIENT
  Age: 82 Year
  Sex: Female

DRUGS (1)
  1. ZEMPLAR [Suspect]
     Active Substance: PARICALCITOL
     Indication: PRODUCT USED FOR UNKNOWN INDICATION
     Route: 042
     Dates: start: 20100805, end: 20160701

REACTIONS (5)
  - Malaise [Unknown]
  - Respiratory tract infection [Unknown]
  - Dysarthria [Fatal]
  - Dyspnoea [Unknown]
  - Asthenia [Fatal]

NARRATIVE: CASE EVENT DATE: 20160624
